FAERS Safety Report 8592947-X (Version None)
Quarter: 2012Q3

REPORT INFORMATION
  Report Type: 
  Country: None (occurrence: None)
  Receive Date: 20120814
  Receipt Date: 20120730
  Transmission Date: 20120928
  Serious: Yes (Other)
  Sender: FDA-Public Use
  Company Number: BR-ROCHE-1095066

PATIENT
  Sex: Female
  Weight: 87 kg

DRUGS (5)
  1. PEGASYS [Suspect]
     Indication: HEPATITIS C
     Dates: start: 20120601
  2. DRAMIN [Concomitant]
     Route: 048
  3. VICTRELIS [Suspect]
     Indication: HEPATITIS C
     Route: 048
     Dates: start: 20120707
  4. LISADOR [Concomitant]
     Route: 048
  5. RIBAVIRIN [Concomitant]
     Indication: HEPATITIS C
     Route: 048
     Dates: start: 20120601

REACTIONS (7)
  - INCREASED APPETITE [None]
  - NAUSEA [None]
  - HEADACHE [None]
  - HEPATITIS C [None]
  - DRY MOUTH [None]
  - DYSGEUSIA [None]
  - MATERNAL EXPOSURE DURING PREGNANCY [None]
